FAERS Safety Report 8987006 (Version 2)
Quarter: 2013Q3

REPORT INFORMATION
  Report Type: Spontaneous
  Country: FR (occurrence: FR)
  Receive Date: 20121227
  Receipt Date: 20130702
  Transmission Date: 20140515
  Serious: Yes (Hospitalization)
  Sender: FDA-Public Use
  Company Number: FR-BIOGENIDEC-2012BI060726

PATIENT
  Age: 50 Year
  Sex: Female

DRUGS (1)
  1. TYSABRI [Suspect]
     Indication: MULTIPLE SCLEROSIS
     Route: 042
     Dates: start: 20110301, end: 20121127

REACTIONS (1)
  - Invasive ductal breast carcinoma [Recovered/Resolved]
